FAERS Safety Report 17151759 (Version 1)
Quarter: 2019Q4

REPORT INFORMATION
  Report Type: Spontaneous
  Country: US (occurrence: US)
  Receive Date: 20191212
  Receipt Date: 20191212
  Transmission Date: 20200122
  Serious: Yes (Life-Threatening, Disabling, Other)
  Sender: FDA-Public Use
  Company Number: None

PATIENT
  Age: 66 Year
  Sex: Female
  Weight: 56.25 kg

DRUGS (7)
  1. HYDROXYCHLOROQUINE SULFATE TABS [Suspect]
     Active Substance: HYDROXYCHLOROQUINE SULFATE
     Indication: RHEUMATOID ARTHRITIS
     Dosage: ?          QUANTITY:1 TABLET(S);?
     Route: 048
  2. ALIGN [Concomitant]
     Active Substance: BIFIDOBACTERIUM LONGUM SUBSP. INFANTIS
  3. MOVE FREE JOINT HEALTH TYPE 2 COLLAGEN [Concomitant]
  4. BORON [Concomitant]
     Active Substance: BORON
  5. BIOTIN 5000 MCG [Concomitant]
  6. HA [Concomitant]
  7. VITAMIN D3 25MCG 1000IU [Concomitant]

REACTIONS (7)
  - Depression [None]
  - Anxiety disorder [None]
  - Suicidal ideation [None]
  - Loss of personal independence in daily activities [None]
  - Syncope [None]
  - Impaired driving ability [None]
  - Hypoglycaemia [None]

NARRATIVE: CASE EVENT DATE: 20181001
